FAERS Safety Report 8248502-4 (Version None)
Quarter: 2012Q1

REPORT INFORMATION
  Report Type: 
  Country: None (occurrence: None)
  Receive Date: 20120330
  Receipt Date: 20120323
  Transmission Date: 20120608
  Serious: Yes (Disabling, Other)
  Sender: FDA-Public Use
  Company Number: DE-MERCK-1105DEU00002

PATIENT
  Age: 68 Year
  Sex: Male

DRUGS (1)
  1. PROSCAR [Suspect]
     Indication: NOCTURIA
     Route: 048
     Dates: start: 20040401, end: 20080101

REACTIONS (9)
  - DIZZINESS [None]
  - ASTHENIA [None]
  - GYNAECOMASTIA [None]
  - STRESS URINARY INCONTINENCE [None]
  - HOT FLUSH [None]
  - PROSTATIC SPECIFIC ANTIGEN DECREASED [None]
  - PROSTATE CANCER [None]
  - VOMITING [None]
  - ERECTILE DYSFUNCTION [None]
